FAERS Safety Report 7293939-3 (Version None)
Quarter: 2011Q1

REPORT INFORMATION
  Report Type: 
  Country: None (occurrence: None)
  Receive Date: 20110215
  Receipt Date: 20110207
  Transmission Date: 20110831
  Serious: Yes (Other)
  Sender: FDA-Public Use
  Company Number: CHPA2011US02445

PATIENT
  Age: 60 Year
  Sex: Male

DRUGS (7)
  1. ACCUPRIL [Concomitant]
     Indication: CARDIAC DISORDER
     Dosage: 10 MG, QD
     Route: 048
  2. COREG [Concomitant]
     Indication: CARDIAC DISORDER
     Dosage: 12.5 MG, BID
     Route: 048
  3. COUMADIN [Concomitant]
     Indication: CARDIAC DISORDER
     Dosage: 7.5 MG, QD
     Route: 048
  4. NEURONTIN [Concomitant]
     Dosage: UNK, UNK
     Route: 048
  5. 4 WAY MENTHOLATED NASAL SPRAY [Suspect]
     Indication: SINUS DISORDER
  6. 4 WAY MENTHOLATED NASAL SPRAY [Suspect]
     Indication: SINUS CONGESTION
     Dosage: 1 SPRAY IN EACH NOSTRIL, 3-4 TIMES PER DAY
     Route: 045
     Dates: start: 20110111, end: 20110101
  7. 4 WAY MENTHOLATED NASAL SPRAY [Suspect]
     Indication: NASAL CONGESTION

REACTIONS (5)
  - DYSPNOEA [None]
  - SINUS CONGESTION [None]
  - DRUG INEFFECTIVE [None]
  - CONDITION AGGRAVATED [None]
  - SINUSITIS [None]
